FAERS Safety Report 5467642-6 (Version None)
Quarter: 2007Q3

REPORT INFORMATION
  Report Type: 
  Country: None (occurrence: None)
  Receive Date: 20070921
  Receipt Date: 20070918
  Transmission Date: 20080115
  Serious: Yes (Death)
  Sender: FDA-Public Use
  Company Number: 163-21880-06100152

PATIENT
  Age: 82 Year
  Sex: Male

DRUGS (4)
  1. REVLIMID [Suspect]
     Indication: MYELODYSPLASTIC SYNDROME
     Dosage: 10 MG, QD X 28 DAYS, ORAL
     Route: 048
     Dates: start: 20060905, end: 20070201
  2. PRILOSEC [Concomitant]
  3. CENTRUM SILVER (CENTRUM SILVER) [Concomitant]
  4. EXJADE [Concomitant]

REACTIONS (5)
  - DISEASE PROGRESSION [None]
  - FATIGUE [None]
  - JOINT SWELLING [None]
  - MYELODYSPLASTIC SYNDROME [None]
  - SOMNOLENCE [None]
